FAERS Safety Report 20174239 (Version 1)
Quarter: 2021Q4

REPORT INFORMATION
  Report Type: Spontaneous
  Country: US (occurrence: US)
  Receive Date: 20211213
  Receipt Date: 20211213
  Transmission Date: 20220303
  Serious: Yes (Hospitalization, Other)
  Sender: FDA-Public Use
  Company Number: US-ALEMBIC PHARMACUETICALS LIMITED-2021SCAL000486

PATIENT

DRUGS (4)
  1. NITROFURANTOIN [Suspect]
     Active Substance: NITROFURANTOIN
     Indication: Upper respiratory tract infection
     Dosage: UNK
     Route: 065
  2. NITROFURANTOIN [Suspect]
     Active Substance: NITROFURANTOIN
     Indication: Urinary tract infection
  3. AZITHROMYCIN [Suspect]
     Active Substance: AZITHROMYCIN
     Indication: Upper respiratory tract infection
     Dosage: UNK
     Route: 065
  4. AZITHROMYCIN [Suspect]
     Active Substance: AZITHROMYCIN
     Indication: Urinary tract infection

REACTIONS (12)
  - Drug reaction with eosinophilia and systemic symptoms [Recovered/Resolved]
  - Rash macular [Recovered/Resolved]
  - Eosinophilia [Recovered/Resolved]
  - Hepatitis acute [Recovered/Resolved]
  - Hepatic enzyme increased [Recovered/Resolved]
  - Ocular icterus [Recovered/Resolved]
  - Circumoral oedema [Recovered/Resolved]
  - Periorbital oedema [Recovered/Resolved]
  - Jaundice [Recovered/Resolved]
  - Nausea [Recovered/Resolved]
  - Vomiting [Recovered/Resolved]
  - Pyrexia [Recovered/Resolved]
